FAERS Safety Report 5507419-6 (Version None)
Quarter: 2007Q4

REPORT INFORMATION
  Report Type: 
  Country: None (occurrence: None)
  Receive Date: 20071102
  Receipt Date: 20071018
  Transmission Date: 20080405
  Serious: Yes (Death)
  Sender: FDA-Public Use
  Company Number: 162986ISR

PATIENT
  Sex: Male

DRUGS (1)
  1. PACLITAXEL [Suspect]
     Dosage: 300 MG, INTRAVENOUS
     Route: 042

REACTIONS (1)
  - SYNCOPE [None]
